FAERS Safety Report 18627904 (Version 1)
Quarter: 2020Q4

REPORT INFORMATION
  Report Type: Spontaneous
  Country: US (occurrence: US)
  Receive Date: 20201217
  Receipt Date: 20201217
  Transmission Date: 20210114
  Serious: No
  Sender: FDA-Public Use
  Company Number: US-CURIUM-200200175

PATIENT
  Age: 30 Year
  Sex: Female

DRUGS (2)
  1. LASIX [Concomitant]
     Active Substance: FUROSEMIDE
     Route: 042
  2. TECHNESCAN MAG3 [Suspect]
     Active Substance: TECHNETIUM TC-99M TIATIDE

REACTIONS (4)
  - Pyrexia [Unknown]
  - Headache [Unknown]
  - Vomiting [Unknown]
  - Nausea [Unknown]
